FAERS Safety Report 20090667 (Version 1)
Quarter: 2021Q4

REPORT INFORMATION
  Report Type: Report from Study
  Country: MX (occurrence: MX)
  Receive Date: 20211119
  Receipt Date: 20211119
  Transmission Date: 20220303
  Serious: Yes (Death, Hospitalization)
  Sender: FDA-Public Use
  Company Number: MX-ABBVIE-21K-107-4168565-00

PATIENT
  Age: 67 Year
  Sex: Male
  Weight: 87 kg

DRUGS (1)
  1. HUMIRA [Suspect]
     Active Substance: ADALIMUMAB
     Indication: Ankylosing spondylitis
     Route: 058
     Dates: start: 20160915

REACTIONS (1)
  - Death [Fatal]

NARRATIVE: CASE EVENT DATE: 20211026
